FAERS Safety Report 9477219 (Version 1)
Quarter: 2013Q3

REPORT INFORMATION
  Report Type: Spontaneous
  Country: US (occurrence: US)
  Receive Date: 20130826
  Receipt Date: 20130826
  Transmission Date: 20140515
  Serious: Yes (Other)
  Sender: FDA-Public Use
  Company Number: US-BAYER-2013-102316

PATIENT
  Age: 62 Year
  Sex: Female
  Weight: 86.17 kg

DRUGS (5)
  1. BAYER EXTRA STRENGTH BACK + BODY PAIN [Suspect]
     Indication: ARTHRITIS
     Dosage: 1 DF, PRN
     Route: 048
  2. BAYER ASPIRIN REGIMEN ADULT LOW STRENGTH [Suspect]
     Dosage: 1 DF, QD
     Route: 048
  3. NAPROXEN [Concomitant]
  4. TYLENOL [PARACETAMOL] [Concomitant]
  5. IBUPROFEN [Concomitant]

REACTIONS (3)
  - Haematochezia [Recovered/Resolved]
  - Epigastric discomfort [None]
  - Abdominal pain upper [Not Recovered/Not Resolved]
